FAERS Safety Report 13873593 (Version 1)
Quarter: 2017Q3

REPORT INFORMATION
  Report Type: Spontaneous
  Country: AU (occurrence: AU)
  Receive Date: 20170816
  Receipt Date: 20170816
  Transmission Date: 20171127
  Serious: Yes (Other)
  Sender: FDA-Public Use
  Company Number: PHHY2017AU117326

PATIENT
  Sex: Female

DRUGS (2)
  1. TRAMETINIB [Suspect]
     Active Substance: TRAMETINIB
     Indication: MALIGNANT MELANOMA
     Route: 065
  2. DABRAFENIB [Suspect]
     Active Substance: DABRAFENIB
     Indication: MALIGNANT MELANOMA
     Route: 065

REACTIONS (7)
  - Pyrexia [Unknown]
  - Chills [Unknown]
  - Neutropenia [Unknown]
  - Hyperhidrosis [Unknown]
  - Liver function test abnormal [Unknown]
  - Toxicity to various agents [Not Recovered/Not Resolved]
  - Metastasis [Not Recovered/Not Resolved]
